FAERS Safety Report 4590897-7 (Version None)
Quarter: 2005Q1

REPORT INFORMATION
  Report Type: 
  Country: None (occurrence: None)
  Receive Date: 20050225
  Receipt Date: 20041206
  Transmission Date: 20050727
  Serious: No
  Sender: FDA-Public Use
  Company Number: US-GLAXOSMITHKLINE-A0536234A

PATIENT
  Age: 38 Year
  Sex: Male
  Weight: 85 kg

DRUGS (4)
  1. EPZICOM [Suspect]
     Indication: HIV INFECTION
     Route: 048
     Dates: start: 20041101
  2. REYATAZ [Concomitant]
  3. NORVIR [Concomitant]
  4. SUSTIVA [Concomitant]

REACTIONS (1)
  - FEELING HOT [None]
